FAERS Safety Report 24186433 (Version 1)
Quarter: 2024Q3

REPORT INFORMATION
  Report Type: Spontaneous
  Country: US (occurrence: US)
  Receive Date: 20240808
  Receipt Date: 20240808
  Transmission Date: 20241017
  Serious: No
  Sender: NOVARTIS
  Company Number: US-002147023-NVSC2024US161201

PATIENT
  Sex: Female

DRUGS (1)
  1. LEQVIO [Suspect]
     Active Substance: INCLISIRAN SODIUM
     Indication: Low density lipoprotein increased
     Dosage: 284MG/1.5M, 1ST INJECTION IN APRIL; 2ND INJECTION IN JULY
     Route: 058
     Dates: start: 202404, end: 202407

REACTIONS (1)
  - Injection site rash [Recovering/Resolving]
